FAERS Safety Report 15794642 (Version 1)
Quarter: 2019Q1

REPORT INFORMATION
  Report Type: Spontaneous
  Country: US (occurrence: US)
  Receive Date: 20190107
  Receipt Date: 20190107
  Transmission Date: 20190417
  Serious: No
  Sender: FDA-Public Use
  Company Number: US-AMGEN-USASP2019001315

PATIENT
  Age: 40 Year
  Sex: Female

DRUGS (1)
  1. AIMOVIG [Suspect]
     Active Substance: ERENUMAB-AOOE
     Indication: MIGRAINE PROPHYLAXIS
     Dosage: 70 MG, QMO
     Route: 065
     Dates: start: 20180801, end: 20181201

REACTIONS (4)
  - Petechiae [Unknown]
  - Rash erythematous [Unknown]
  - Incorrect route of product administration [Unknown]
  - Rash vesicular [Unknown]

NARRATIVE: CASE EVENT DATE: 2018
